FAERS Safety Report 4824335-3 (Version None)
Quarter: 2005Q4

REPORT INFORMATION
  Report Type: 
  Country: None (occurrence: None)
  Receive Date: 20051109
  Receipt Date: 20050927
  Transmission Date: 20060501
  Serious: Yes (Other)
  Sender: FDA-Public Use
  Company Number: US-MERCK-0509USA04952

PATIENT
  Age: 62 Year
  Sex: Male
  Weight: 78 kg

DRUGS (6)
  1. VIOXX [Suspect]
     Indication: ROTATOR CUFF SYNDROME
     Route: 048
     Dates: start: 20030509, end: 20030601
  2. VIOXX [Suspect]
     Route: 048
     Dates: start: 20030601, end: 20040101
  3. VIOXX [Suspect]
     Indication: OSTEOARTHRITIS
     Route: 048
     Dates: start: 20030509, end: 20030601
  4. VIOXX [Suspect]
     Route: 048
     Dates: start: 20030601, end: 20040101
  5. NORVASC [Concomitant]
     Indication: BLOOD PRESSURE
     Route: 065
  6. ZETIA [Concomitant]
     Indication: BLOOD CHOLESTEROL INCREASED
     Route: 065

REACTIONS (7)
  - ARTERIAL OCCLUSIVE DISEASE [None]
  - ARTERIOSCLEROSIS CORONARY ARTERY [None]
  - HAEMANGIOMA OF LIVER [None]
  - HAEMATURIA [None]
  - HEART RATE IRREGULAR [None]
  - HEPATIC MASS [None]
  - RENAL CYST [None]
